FAERS Safety Report 14499893 (Version 2)
Quarter: 2021Q4

REPORT INFORMATION
  Report Type: Report from Study
  Country: FR (occurrence: FR)
  Receive Date: 20180207
  Receipt Date: 20211020
  Transmission Date: 20220303
  Serious: Yes (Hospitalization, Other)
  Sender: FDA-Public Use
  Company Number: FR-SHIRE-FR201731220

PATIENT
  Sex: Male

DRUGS (14)
  1. METHOTREXATE [Suspect]
     Active Substance: METHOTREXATE
     Indication: Acute lymphocytic leukaemia
     Dosage: 12 MILLIGRAM
     Route: 037
  2. METHOTREXATE [Suspect]
     Active Substance: METHOTREXATE
     Dosage: 12 MILLIGRAM
     Route: 037
     Dates: start: 20171023
  3. HYDROCORTISONE [Suspect]
     Active Substance: HYDROCORTISONE
     Indication: Acute lymphocytic leukaemia
     Dosage: 15 MILLIGRAM
     Route: 037
  4. HYDROCORTISONE [Suspect]
     Active Substance: HYDROCORTISONE
     Dosage: 15 MILLIGRAM
     Route: 037
     Dates: start: 20171023
  5. VINCRISTINE [Suspect]
     Active Substance: VINCRISTINE
     Indication: Acute lymphocytic leukaemia
     Dosage: 1.5 MILLIGRAM
     Route: 042
  6. VINCRISTINE [Suspect]
     Active Substance: VINCRISTINE
     Dosage: 1.5 MILLIGRAM (04-NOV-2017)
     Route: 042
  7. CYTARABINE [Suspect]
     Active Substance: CYTARABINE
     Indication: Acute lymphocytic leukaemia
     Dosage: 70 MILLIGRAM
     Route: 042
  8. CYTARABINE [Suspect]
     Active Substance: CYTARABINE
     Dosage: 30 MILLIGRAM
     Route: 037
  9. CYTARABINE [Suspect]
     Active Substance: CYTARABINE
     Dosage: 70 MILLIGRAM
     Route: 042
     Dates: start: 20171023
  10. CYTARABINE [Suspect]
     Active Substance: CYTARABINE
     Dosage: 30 MILLIGRAM
     Route: 037
     Dates: start: 20171023
  11. PEGASPARGASE [Suspect]
     Active Substance: PEGASPARGASE
     Indication: Acute lymphocytic leukaemia
     Dosage: 2400 INTERNATIONAL UNIT
     Route: 042
  12. PEGASPARGASE [Suspect]
     Active Substance: PEGASPARGASE
     Dosage: 2400 INTERNATIONAL UNIT (04-NOV-2017)
     Route: 042
  13. MERCAPTOPURINE [Suspect]
     Active Substance: MERCAPTOPURINE
     Indication: Acute lymphocytic leukaemia
     Dosage: 60 MILLIGRAM
     Route: 048
  14. MERCAPTOPURINE [Suspect]
     Active Substance: MERCAPTOPURINE
     Dosage: 60 MILLIGRAM
     Route: 048
     Dates: start: 20171021

REACTIONS (2)
  - Epistaxis [Recovered/Resolved]
  - Thrombocytopenia [Recovered/Resolved]

NARRATIVE: CASE EVENT DATE: 20171111
